FAERS Safety Report 6872805-9 (Version None)
Quarter: 2010Q3

REPORT INFORMATION
  Report Type: 
  Country: None (occurrence: None)
  Receive Date: 20100723
  Receipt Date: 20090127
  Transmission Date: 20110219
  Serious: Yes (Other)
  Sender: FDA-Public Use
  Company Number: US-PFIZER INC-2008091790

PATIENT
  Sex: Female
  Weight: 67.12 kg

DRUGS (1)
  1. CHANTIX [Suspect]
     Indication: SMOKING CESSATION THERAPY
     Dosage: 1 MG, 2X/DAY
     Route: 048
     Dates: start: 20080129, end: 20080208

REACTIONS (3)
  - BLOOD PRESSURE INCREASED [None]
  - DYSARTHRIA [None]
  - PALPITATIONS [None]
